FAERS Safety Report 7417935-8 (Version None)
Quarter: 2011Q2

REPORT INFORMATION
  Report Type: 
  Country: None (occurrence: None)
  Receive Date: 20110415
  Receipt Date: 20110411
  Transmission Date: 20111010
  Serious: Yes (Other)
  Sender: FDA-Public Use
  Company Number: BR-ROCHE-534082

PATIENT
  Sex: Female
  Weight: 75 kg

DRUGS (8)
  1. ALTIVA [Concomitant]
  2. PANTOCAL [Concomitant]
  3. PERIDON [Concomitant]
     Dosage: REPORTED AS: PERIDONA
  4. RANITIDINE [Concomitant]
     Indication: URINARY TRACT DISORDER
     Dosage: DOSAGE REGIMEN: OCCASIONALLY
  5. GASTRIN [Concomitant]
     Dosage: REPORTED AS: GASTRIUM
  6. OLCADIL [Concomitant]
     Dosage: DOSAGE REGIMEN: DAILY
     Dates: start: 20050101
  7. OSCAL D [Concomitant]
     Indication: OSTEOPOROSIS
     Dosage: DOSAGE REGIMEN: DAILY
     Dates: start: 20070601
  8. BONIVA [Suspect]
     Indication: OSTEOPENIA
     Route: 048
     Dates: start: 20070101, end: 20090101

REACTIONS (10)
  - LUNG NEOPLASM [None]
  - THERAPEUTIC RESPONSE DECREASED [None]
  - SKIN PAPILLOMA [None]
  - GASTROINTESTINAL DISORDER [None]
  - GASTROINTESTINAL MUCOSAL DISORDER [None]
  - WEIGHT INCREASED [None]
  - BACK PAIN [None]
  - CORROSIVE GASTRITIS [None]
  - INSOMNIA [None]
  - HIATUS HERNIA [None]
